FAERS Safety Report 8097659-7 (Version None)
Quarter: 2012Q1

REPORT INFORMATION
  Report Type: 
  Country: None (occurrence: None)
  Receive Date: 20120128
  Receipt Date: 20110705
  Transmission Date: 20120608
  Serious: No
  Sender: FDA-Public Use
  Company Number: US-ABBOTT-11P-163-0836523-00

PATIENT
  Sex: Female
  Weight: 62.652 kg

DRUGS (11)
  1. METOPROLOL TARTRATE [Concomitant]
     Indication: CARDIAC DISORDER
  2. AMITRIPTYLINE HCL [Concomitant]
     Indication: DEPRESSION
  3. LIPITOR [Concomitant]
     Indication: BLOOD CHOLESTEROL INCREASED
  4. DIOVAN [Concomitant]
     Indication: HYPERTENSION
  5. ZANTAC [Concomitant]
     Indication: GASTRIC PH DECREASED
  6. METFORMIN HCL [Concomitant]
     Indication: DIABETES MELLITUS
  7. NIFEDIPINE [Concomitant]
     Indication: HYPERTENSION
  8. IRON [Concomitant]
     Indication: PRODUCT USED FOR UNKNOWN INDICATION
  9. HUMIRA [Suspect]
     Indication: RHEUMATOID ARTHRITIS
     Dates: start: 20100101
  10. PLAQUENIL [Concomitant]
     Indication: PRODUCT USED FOR UNKNOWN INDICATION
  11. IMURAN [Concomitant]
     Indication: RHEUMATOID ARTHRITIS

REACTIONS (4)
  - RASH [None]
  - RASH PRURITIC [None]
  - SKIN EXFOLIATION [None]
  - RASH ERYTHEMATOUS [None]
